FAERS Safety Report 6392332-5 (Version None)
Quarter: 2009Q4

REPORT INFORMATION
  Report Type: 
  Country: None (occurrence: None)
  Receive Date: 20091007
  Receipt Date: 20090924
  Transmission Date: 20100525
  Serious: Yes (Other)
  Sender: FDA-Public Use
  Company Number: PHHY2009BR41500

PATIENT
  Sex: Female
  Weight: 70 kg

DRUGS (1)
  1. ZOMETA [Suspect]
     Indication: OSTEOPOROSIS
     Dosage: 4 MG (1 APPLICATION)
     Route: 042
     Dates: start: 20090915

REACTIONS (8)
  - ARTHRALGIA [None]
  - ASTHENIA [None]
  - BLOOD GLUCOSE INCREASED [None]
  - CHILLS [None]
  - GAIT DISTURBANCE [None]
  - JOINT SWELLING [None]
  - PYREXIA [None]
  - VOMITING [None]
